FAERS Safety Report 7575066-0 (Version None)
Quarter: 2011Q2

REPORT INFORMATION
  Report Type: 
  Country: None (occurrence: None)
  Receive Date: 20110627
  Receipt Date: 20110112
  Transmission Date: 20111010
  Serious: Yes (Hospitalization, Other)
  Sender: FDA-Public Use
  Company Number: US-BAYER-201035896NA

PATIENT
  Age: 28 Year
  Sex: Female
  Weight: 73.016 kg

DRUGS (2)
  1. DROSPIRENONE AND ETHINYL ESTRADIOL [Suspect]
     Route: 048
     Dates: start: 20060701, end: 20091001
  2. YASMIN [Suspect]
     Route: 048
     Dates: start: 20060701, end: 20091001

REACTIONS (6)
  - ABDOMINAL PAIN UPPER [None]
  - GALLBLADDER CHOLESTEROLOSIS [None]
  - BILIARY DYSKINESIA [None]
  - GALLBLADDER DISORDER [None]
  - BACK PAIN [None]
  - CHOLECYSTITIS CHRONIC [None]
